FAERS Safety Report 14963278 (Version 1)
Quarter: 2018Q2

REPORT INFORMATION
  Report Type: Spontaneous
  Country: US (occurrence: US)
  Receive Date: 20180601
  Receipt Date: 20180601
  Transmission Date: 20180711
  Serious: Yes (Other)
  Sender: FDA-Public Use
  Company Number: US-GLAXOSMITHKLINE-US2018096944

PATIENT
  Age: 72 Year
  Sex: Female

DRUGS (1)
  1. VENTOLIN HFA [Suspect]
     Active Substance: ALBUTEROL SULFATE
     Dosage: UNK

REACTIONS (7)
  - Gastric disorder [Not Recovered/Not Resolved]
  - Pain in extremity [Not Recovered/Not Resolved]
  - Rotator cuff syndrome [Not Recovered/Not Resolved]
  - Aneurysm [Unknown]
  - Lung neoplasm malignant [Not Recovered/Not Resolved]
  - Monoplegia [Not Recovered/Not Resolved]
  - Aneurysm repair [Unknown]

NARRATIVE: CASE EVENT DATE: 201712
